FAERS Safety Report 10868243 (Version 3)
Quarter: 2015Q4

REPORT INFORMATION
  Report Type: Spontaneous
  Country: JP (occurrence: JP)
  Receive Date: 20150225
  Receipt Date: 20151005
  Transmission Date: 20160304
  Serious: Yes (Other)
  Sender: FDA-Public Use
  Company Number: JP-GLAXOSMITHKLINE-JP2015JPN023620

PATIENT
  Sex: Male

DRUGS (5)
  1. PARIET [Concomitant]
     Active Substance: RABEPRAZOLE SODIUM
  2. PREDONINE [Concomitant]
     Active Substance: PREDNISOLONE\PREDNISOLONE ACETATE\PREDNISOLONE SODIUM SUCCINATE
  3. BONALON [Concomitant]
     Active Substance: ALENDRONATE SODIUM
  4. URSO [Concomitant]
     Active Substance: URSODIOL
  5. REVOLADE [Suspect]
     Active Substance: ELTROMBOPAG
     Dosage: UNK
     Route: 048

REACTIONS (2)
  - Drug-induced liver injury [Unknown]
  - Posterior reversible encephalopathy syndrome [Recovering/Resolving]
